FAERS Safety Report 22306497 (Version 1)
Quarter: 2023Q2

REPORT INFORMATION
  Report Type: Report from Study
  Country: US (occurrence: US)
  Receive Date: 20230511
  Receipt Date: 20230511
  Transmission Date: 20230721
  Serious: No
  Sender: FDA-Public Use
  Company Number: US-ABBVIE-4749326

PATIENT
  Age: 47 Year
  Sex: Male

DRUGS (11)
  1. UPADACITINIB [Suspect]
     Active Substance: UPADACITINIB
     Indication: Crohn^s disease
     Route: 048
     Dates: start: 20181116, end: 20190904
  2. ADVANCED ENZYME SYSTEM [Concomitant]
     Indication: Routine health maintenance
     Route: 048
     Dates: start: 2016
  3. THORNE BIOMINS:CALCIUM, IRON, IODINE, MAGNESIUM, ZINC, SELENIUM,COPPER [Concomitant]
     Indication: Routine health maintenance
     Route: 048
     Dates: start: 2016
  4. VITAMIN D3 [Concomitant]
     Active Substance: CHOLECALCIFEROL
     Indication: Vitamin D deficiency
     Route: 048
     Dates: start: 20200212
  5. TYLENOL EXTRA STRENGTH [Concomitant]
     Active Substance: ACETAMINOPHEN
     Indication: Arthralgia
     Dosage: TIME INTERVAL: AS NECESSARY
     Route: 048
     Dates: start: 201808
  6. IMODIUM [Concomitant]
     Active Substance: LOPERAMIDE HYDROCHLORIDE
     Indication: Diarrhoea
     Route: 048
     Dates: start: 201808
  7. MEN^S HEALTH MULTIVITAMIN [Concomitant]
     Indication: Routine health maintenance
     Route: 048
     Dates: start: 2016
  8. RAW PROBIOTICS KIDS [Concomitant]
     Indication: Routine health maintenance
     Route: 048
     Dates: start: 2016
  9. AZELASTINE [Concomitant]
     Active Substance: AZELASTINE
     Indication: Rhinitis
     Dosage: 1 SPRAY, 1 %
     Route: 045
     Dates: start: 20180806
  10. BIFIDOBACTERIUM - LACTOBACILLUS [Concomitant]
     Indication: Routine health maintenance
     Route: 048
     Dates: start: 20180806
  11. UPADACITINIB [Suspect]
     Active Substance: UPADACITINIB
     Indication: Crohn^s disease
     Route: 048
     Dates: start: 20190905

REACTIONS (1)
  - Rhegmatogenous retinal detachment [Recovered/Resolved]

NARRATIVE: CASE EVENT DATE: 20200224
